FAERS Safety Report 7924226-5 (Version None)
Quarter: 2011Q4

REPORT INFORMATION
  Report Type: 
  Country: None (occurrence: None)
  Receive Date: 20111117
  Receipt Date: 20110321
  Transmission Date: 20120403
  Serious: No
  Sender: FDA-Public Use
  Company Number: US-AMGEN-USASP2011011698

PATIENT
  Age: 58 Year
  Sex: Male
  Weight: 88.9 kg

DRUGS (2)
  1. ENBREL [Suspect]
     Indication: RHEUMATOID ARTHRITIS
     Dosage: 50 MG, QWK
     Route: 058
     Dates: start: 20101112
  2. ENBREL [Suspect]
     Indication: OSTEOARTHRITIS

REACTIONS (1)
  - SINUS CONGESTION [None]
